FAERS Safety Report 7120502-7 (Version None)
Quarter: 2010Q4

REPORT INFORMATION
  Report Type: 
  Country: None (occurrence: None)
  Receive Date: 20101119
  Receipt Date: 20101119
  Transmission Date: 20110411
  Serious: No
  Sender: FDA-Public Use
  Company Number: None

PATIENT
  Age: 70 Year
  Sex: Male
  Weight: 88.7 kg

DRUGS (1)
  1. ENALAPRILAT [Suspect]
     Indication: SURGERY
     Dosage: 1.25 MG OTHER IV
     Route: 042
     Dates: start: 20100615, end: 20100615

REACTIONS (1)
  - ANGIOEDEMA [None]
